FAERS Safety Report 8803750 (Version 2)
Quarter: 2012Q4

REPORT INFORMATION
  Report Type: 
  Country: US (occurrence: US)
  Receive Date: 20120924
  Receipt Date: 20121011
  Transmission Date: 20130627
  Serious: Yes (Hospitalization, Other)
  Sender: FDA-Public Use
  Company Number: US-009507513-1107USA03283

PATIENT

DRUGS (10)
  1. FOSAMAX [Suspect]
     Indication: OSTEOPENIA
     Dosage: 70 mg, QW
     Route: 048
     Dates: start: 200105, end: 200803
  2. FOSAMAX [Suspect]
     Dosage: 10 mg, qd
     Route: 048
     Dates: start: 20010509
  3. FOSAMAX [Suspect]
     Indication: OSTEOPENIA
     Dosage: 70 mg, UNK
     Route: 048
     Dates: start: 20080403, end: 200909
  4. ASCORBIC ACID [Concomitant]
     Dosage: 1000 mg, qd
     Dates: start: 2001
  5. CALCIUM (UNSPECIFIED) [Concomitant]
     Dosage: 1200 mg, UNK
     Dates: start: 2001
  6. MK-9278 [Concomitant]
     Dosage: one
     Dates: start: 2001
  7. VITAMIN D (UNSPECIFIED) [Concomitant]
     Dosage: 1200 U, qd
     Dates: start: 2001
  8. DOXEPIN HYDROCHLORIDE [Concomitant]
     Indication: MIGRAINE PROPHYLAXIS
     Dates: start: 199310
  9. RYNATAN (AZATADINE MALEATE (+) PSEUDOEPHEDRINE SULFATE) [Concomitant]
     Indication: HYPERSENSITIVITY
     Dates: start: 20010627
  10. MAXALT [Concomitant]
     Route: 048

REACTIONS (93)
  - Femur fracture [Unknown]
  - Deafness neurosensory [Unknown]
  - Meniscus injury [Unknown]
  - Pulmonary embolism [Unknown]
  - Osteoarthritis [Unknown]
  - Open reduction of fracture [Unknown]
  - Hip arthroplasty [Unknown]
  - Pneumonitis [Unknown]
  - Atelectasis [Unknown]
  - Pneumonia [Unknown]
  - Lung infiltration [Unknown]
  - Anxiety [Recovering/Resolving]
  - Fall [Unknown]
  - Depression [Recovering/Resolving]
  - Fall [Unknown]
  - Limb injury [Unknown]
  - Back injury [Unknown]
  - Fall [Unknown]
  - Low turnover osteopathy [Unknown]
  - Foot fracture [Unknown]
  - Rib fracture [Unknown]
  - Fall [Unknown]
  - Diabetes mellitus [Unknown]
  - Hyperlipidaemia [Unknown]
  - Eustachian tube dysfunction [Unknown]
  - Sinus congestion [Unknown]
  - Rhinitis allergic [Not Recovered/Not Resolved]
  - Polyarthritis [Not Recovered/Not Resolved]
  - Contusion [Unknown]
  - Foot fracture [Unknown]
  - Mitral valve incompetence [Not Recovered/Not Resolved]
  - Orthopnoea [Unknown]
  - Fall [Unknown]
  - Blister [Unknown]
  - Bronchitis [Unknown]
  - Adverse drug reaction [Unknown]
  - Obesity [Unknown]
  - Mitral valve prolapse [Unknown]
  - Pulmonary hypertension [Unknown]
  - Fatigue [Unknown]
  - Tenosynovitis [Unknown]
  - Limb asymmetry [Unknown]
  - Cough [Unknown]
  - Actinic keratosis [Unknown]
  - Multiple lentigines syndrome [Unknown]
  - Campbell de Morgan spots [Unknown]
  - Seborrhoeic keratosis [Unknown]
  - Blood cholesterol increased [Unknown]
  - Tooth fracture [Unknown]
  - Gingival bleeding [Unknown]
  - Tooth fracture [Unknown]
  - Tooth fracture [Unknown]
  - Gingival pain [Unknown]
  - Dental caries [Unknown]
  - Tooth fracture [Unknown]
  - Dental discomfort [Unknown]
  - Tooth disorder [Unknown]
  - Influenza [Unknown]
  - Gingival bleeding [Unknown]
  - Urinary tract infection [Unknown]
  - Haematoma [Unknown]
  - Iron deficiency anaemia [Unknown]
  - Trigger finger [Unknown]
  - Skin ulcer [Unknown]
  - Urinary tract infection [Unknown]
  - Insomnia [Not Recovered/Not Resolved]
  - Large intestine polyp [Unknown]
  - Hypercholesterolaemia [Unknown]
  - Bronchitis [Unknown]
  - Costochondritis [Unknown]
  - Epistaxis [Unknown]
  - Laryngitis [Unknown]
  - Palmar-plantar erythrodysaesthesia syndrome [Unknown]
  - Sciatica [Unknown]
  - Venous insufficiency [Unknown]
  - Acute sinusitis [Unknown]
  - Chest discomfort [Unknown]
  - Pleurisy [Unknown]
  - Tendonitis [Unknown]
  - Conjunctivitis [Unknown]
  - Pneumonia [Unknown]
  - Arthralgia [Unknown]
  - Osteoporosis [Unknown]
  - Intervertebral disc degeneration [Unknown]
  - Spinal osteoarthritis [Unknown]
  - Back pain [Unknown]
  - Rash [Unknown]
  - Vomiting [Unknown]
  - Drug ineffective [Unknown]
  - Vertigo [Unknown]
  - Headache [Unknown]
  - Gastrooesophageal reflux disease [Unknown]
  - Overdose [Unknown]
